FAERS Safety Report 15882553 (Version 1)
Quarter: 2019Q1

REPORT INFORMATION
  Report Type: Spontaneous
  Country: FR (occurrence: FR)
  Receive Date: 20190129
  Receipt Date: 20190129
  Transmission Date: 20190417
  Serious: Yes (Hospitalization)
  Sender: FDA-Public Use
  Company Number: FR-TEVA-2019-FR-1003839

PATIENT
  Age: 24 Year
  Sex: Female

DRUGS (4)
  1. MORPHINE [Concomitant]
     Active Substance: MORPHINE
     Indication: INTENTIONAL PRODUCT MISUSE
     Route: 048
  2. NEFOPAM (CHLORHYDRATE DE) [Suspect]
     Active Substance: NEFOPAM HYDROCHLORIDE
     Indication: INTENTIONAL PRODUCT MISUSE
     Route: 048
  3. TRAMADOL (CHLORHYDRATE DE) [Suspect]
     Active Substance: TRAMADOL HYDROCHLORIDE
     Indication: INTENTIONAL PRODUCT MISUSE
     Route: 048
  4. RIVOTRIL [Suspect]
     Active Substance: CLONAZEPAM
     Indication: INTENTIONAL PRODUCT MISUSE
     Route: 048
     Dates: start: 20180501, end: 20180501

REACTIONS (3)
  - Somnolence [Recovered/Resolved]
  - Drug dependence [Recovering/Resolving]
  - Livedo reticularis [Recovered/Resolved]

NARRATIVE: CASE EVENT DATE: 20180502
